FAERS Safety Report 14323601 (Version 2)
Quarter: 2018Q2

REPORT INFORMATION
  Report Type: Other
  Country: RO (occurrence: RO)
  Receive Date: 20171226
  Receipt Date: 20180514
  Transmission Date: 20180711
  Serious: Yes (Hospitalization, Other)
  Sender: FDA-Public Use
  Company Number: RO-GLENMARK PHARMACEUTICALS-2017GMK030173

PATIENT
  Age: 5 Year
  Sex: Female
  Weight: 27 kg

DRUGS (3)
  1. LAMOTRIGINE. [Suspect]
     Active Substance: LAMOTRIGINE
     Indication: EPILEPSY
     Dosage: WEEK 1 - 2?25 MG/DAY
     Route: 065
  2. LAMOTRIGINE. [Interacting]
     Active Substance: LAMOTRIGINE
     Dosage: WEEK 3 - 2X50 MG/DAY
     Route: 065
  3. DEPAKINE                           /00228502/ [Interacting]
     Active Substance: VALPROATE SODIUM
     Indication: EPILEPSY
     Dosage: 600 MG, QD
     Route: 065

REACTIONS (15)
  - Facial pain [Unknown]
  - Abdominal pain [Unknown]
  - Vomiting [Unknown]
  - Drug ineffective [Unknown]
  - Rotavirus infection [Unknown]
  - Rash [Unknown]
  - Drug interaction [Unknown]
  - Gastroenteritis norovirus [Unknown]
  - Pruritus [Unknown]
  - Salivary hypersecretion [Unknown]
  - Pyrexia [Unknown]
  - Stevens-Johnson syndrome [Recovered/Resolved]
  - Conjunctival hyperaemia [Unknown]
  - Diarrhoea [Unknown]
  - Dysphagia [Unknown]
